FAERS Safety Report 4498787-5 (Version None)
Quarter: 2004Q4

REPORT INFORMATION
  Report Type: 
  Country: None (occurrence: None)
  Receive Date: 20041108
  Receipt Date: 20041022
  Transmission Date: 20050328
  Serious: Yes (Disabling)
  Sender: FDA-Public Use
  Company Number: 200406403

PATIENT
  Age: 75 Year
  Sex: Female

DRUGS (2)
  1. PRED FORTE [Suspect]
     Indication: POSTOPERATIVE CARE
     Dosage: 1 DROP QID EYE
     Route: 047
     Dates: start: 20030804
  2. ACULAR [Concomitant]

REACTIONS (8)
  - CRANIAL NERVE INJURY [None]
  - EYE PAIN [None]
  - HEADACHE [None]
  - IMPLANT SITE REACTION [None]
  - POST PROCEDURAL COMPLICATION [None]
  - REFUSAL OF TREATMENT BY PATIENT [None]
  - VISION BLURRED [None]
  - VISUAL ACUITY REDUCED [None]
